FAERS Safety Report 25923021 (Version 1)
Quarter: 2025Q4

REPORT INFORMATION
  Report Type: Spontaneous
  Country: US (occurrence: US)
  Receive Date: 20251015
  Receipt Date: 20251015
  Transmission Date: 20260118
  Serious: No
  Sender: CIPLA
  Company Number: US-CIPLA LTD.-2025US12547

PATIENT

DRUGS (8)
  1. ALBUTEROL [Suspect]
     Active Substance: ALBUTEROL
     Indication: Asthma
     Dosage: 180 MICROGRAM, PRN (2 PUFFS AS NEEDED, FREQUENCY 4 TIMES A DAY) (REGULAR USER FOR 5 YEARS)
     Dates: start: 2020
  2. ALBUTEROL [Suspect]
     Active Substance: ALBUTEROL
     Dosage: 180 MICROGRAM, PRN (2 PUFFS AS NEEDED, FREQUENCY 4 TIMES A DAY)
  3. ALBUTEROL [Suspect]
     Active Substance: ALBUTEROL
     Dosage: 180 MICROGRAM, PRN (2 PUFFS AS NEEDED, FREQUENCY 4 TIMES A DAY)
  4. ALBUTEROL [Suspect]
     Active Substance: ALBUTEROL
     Dosage: 180 MICROGRAM, PRN (2 PUFFS AS NEEDED, FREQUENCY 4 TIMES A DAY) (NEW INHALER)
     Dates: start: 20251001
  5. SYNTHROID [Concomitant]
     Active Substance: LEVOTHYROXINE SODIUM
     Indication: Thyroid disorder
     Dosage: UNK (FROM PAST 15 YEARS)
     Route: 065
     Dates: start: 2010
  6. VITAMINS NOS [Concomitant]
     Active Substance: VITAMINS
     Indication: Product used for unknown indication
     Dosage: UNK
     Route: 065
  7. CALCIUM [Concomitant]
     Active Substance: CALCIUM
     Indication: Blood calcium decreased
     Dosage: UNK
     Route: 065
  8. IRON [Concomitant]
     Active Substance: IRON
     Indication: Anaemia
     Dosage: UNK
     Route: 065

REACTIONS (2)
  - Drug dose omission by device [Unknown]
  - Device delivery system issue [Unknown]

NARRATIVE: CASE EVENT DATE: 20250501
